FAERS Safety Report 6975968-X (Version None)
Quarter: 2010Q3

REPORT INFORMATION
  Report Type: 
  Country: None (occurrence: None)
  Receive Date: 20100910
  Receipt Date: 20090406
  Transmission Date: 20110219
  Serious: No
  Sender: FDA-Public Use
  Company Number: US-WYE-H08846109

PATIENT
  Age: 80 Year
  Sex: Female

DRUGS (9)
  1. PRISTIQ [Suspect]
     Indication: DEPRESSION
     Route: 048
     Dates: start: 20090306
  2. NITROGLYCERIN [Concomitant]
  3. METOCLOPRAMIDE [Concomitant]
  4. WARFARIN SODIUM [Concomitant]
  5. FUROSEMIDE [Concomitant]
  6. POTASSIUM [Concomitant]
  7. ALLOPURINOL [Concomitant]
  8. LISINOPRIL [Concomitant]
  9. PANTOPRAZOLE [Concomitant]

REACTIONS (4)
  - ARTHRALGIA [None]
  - DRUG EFFECT DECREASED [None]
  - MEDICATION RESIDUE [None]
  - PAIN IN EXTREMITY [None]
